FAERS Safety Report 6398811-9 (Version None)
Quarter: 2009Q4

REPORT INFORMATION
  Report Type: 
  Country: None (occurrence: None)
  Receive Date: 20091013
  Receipt Date: 20091008
  Transmission Date: 20100525
  Serious: Yes (Life-Threatening, Hospitalization)
  Sender: FDA-Public Use
  Company Number: JP-SANOFI-SYNTHELABO-F01200900981

PATIENT
  Sex: Male
  Weight: 64 kg

DRUGS (10)
  1. MAGLAX [Concomitant]
     Route: 048
     Dates: start: 20071205
  2. ALOSENN [Concomitant]
     Route: 048
     Dates: start: 20071205
  3. SYMMETREL [Concomitant]
     Dosage: 100 MG
     Route: 048
     Dates: start: 20071203
  4. FRANDOL [Concomitant]
     Dosage: 40 MG
     Route: 050
  5. AMARYL [Concomitant]
     Indication: DIABETES MELLITUS
     Dosage: 2 MG
     Route: 048
     Dates: start: 20071226
  6. LIPITOR [Concomitant]
     Indication: HYPERLIPIDAEMIA
     Dosage: 10 MG
     Route: 048
     Dates: start: 20071218
  7. CLOPIDOGREL [Suspect]
     Indication: CEREBRAL ISCHAEMIA
     Dosage: 75 MG
     Route: 048
     Dates: start: 20071203, end: 20080703
  8. CLOPIDOGREL [Suspect]
     Dosage: 75 MG
     Route: 048
     Dates: start: 20071203, end: 20080703
  9. CLOPIDOGREL [Suspect]
     Dosage: 75 MG
     Route: 048
     Dates: start: 20080711
  10. CLOPIDOGREL [Suspect]
     Dosage: 75 MG
     Route: 048
     Dates: start: 20080711

REACTIONS (1)
  - OESOPHAGEAL CARCINOMA [None]
